FAERS Safety Report 13556537 (Version 2)
Quarter: 2018Q2

REPORT INFORMATION
  Report Type: Spontaneous
  Country: US (occurrence: US)
  Receive Date: 20170517
  Receipt Date: 20180515
  Transmission Date: 20180711
  Serious: No
  Sender: FDA-Public Use
  Company Number: US-SA-2017SA024344

PATIENT
  Age: 62 Year
  Sex: Female
  Weight: 108.86 kg

DRUGS (7)
  1. AMITRIPTYLINE [Concomitant]
     Active Substance: AMITRIPTYLINE
     Indication: INSOMNIA
  2. SOLOSTAR [Suspect]
     Active Substance: DEVICE
     Indication: TYPE 2 DIABETES MELLITUS
     Dates: start: 20161229, end: 20170115
  3. CARVEDILOL. [Concomitant]
     Active Substance: CARVEDILOL
     Indication: BLOOD PRESSURE MEASUREMENT
  4. TOUJEO [Suspect]
     Active Substance: INSULIN GLARGINE
     Indication: TYPE 2 DIABETES MELLITUS
     Dosage: DOSE:110 UNIT(S)
     Route: 051
     Dates: start: 20161229, end: 20170115
  5. METFORMIN [Concomitant]
     Active Substance: METFORMIN HYDROCHLORIDE
  6. VICTOZA [Concomitant]
     Active Substance: LIRAGLUTIDE
     Indication: DIABETES MELLITUS
  7. HYDROCHLOROTHIAZIDE/VALSARTAN [Concomitant]
     Indication: BLOOD PRESSURE MEASUREMENT
     Dosage: 160/12.5

REACTIONS (1)
  - Drug administered in wrong device [Unknown]

NARRATIVE: CASE EVENT DATE: 20161229
